FAERS Safety Report 24133043 (Version 1)
Quarter: 2024Q3

REPORT INFORMATION
  Report Type: Report from Study
  Country: US (occurrence: None)
  Receive Date: 20240724
  Receipt Date: 20240724
  Transmission Date: 20241016
  Serious: Yes (Hospitalization)
  Sender: ASTRAZENECA
  Company Number: 2024A162193

PATIENT
  Age: 26366 Day
  Sex: Female
  Weight: 92.5 kg

DRUGS (1)
  1. CALQUENCE [Suspect]
     Active Substance: ACALABRUTINIB
     Indication: Chronic lymphocytic leukaemia
     Route: 048
     Dates: start: 202404

REACTIONS (1)
  - Blood test abnormal [Unknown]

NARRATIVE: CASE EVENT DATE: 20240705
